FAERS Safety Report 8034110-7 (Version None)
Quarter: 2012Q1

REPORT INFORMATION
  Report Type: 
  Country: None (occurrence: None)
  Receive Date: 20120110
  Receipt Date: 20111116
  Transmission Date: 20120608
  Serious: Yes (Other)
  Sender: FDA-Public Use
  Company Number: US-PURDUE-USA-2011-0079922

PATIENT
  Sex: Male

DRUGS (2)
  1. OXYCONTIN [Suspect]
     Indication: ROAD TRAFFIC ACCIDENT
     Dosage: UNK
     Dates: start: 20010101, end: 20060301
  2. OXYCONTIN [Suspect]
     Indication: INJURY

REACTIONS (4)
  - DELIRIUM [None]
  - DRUG DEPENDENCE [None]
  - OVERDOSE [None]
  - APPARENT DEATH [None]
